FAERS Safety Report 18591973 (Version 4)
Quarter: 2022Q1

REPORT INFORMATION
  Report Type: Spontaneous
  Country: GB (occurrence: GB)
  Receive Date: 20201208
  Receipt Date: 20220325
  Transmission Date: 20220423
  Serious: Yes (Hospitalization, Other)
  Sender: FDA-Public Use
  Company Number: None

PATIENT
  Age: 68 Year
  Sex: Male

DRUGS (31)
  1. CLOPIDOGREL BISULFATE [Suspect]
     Active Substance: CLOPIDOGREL BISULFATE
     Indication: Transient ischaemic attack
     Dosage: 75 MG, QD (IN THE MORNING)
     Route: 065
  2. CLOPIDOGREL BISULFATE [Suspect]
     Active Substance: CLOPIDOGREL BISULFATE
     Dosage: 75 MG, QD (IN THE MORNING)
     Route: 065
  3. CLOPIDOGREL BISULFATE [Suspect]
     Active Substance: CLOPIDOGREL BISULFATE
     Dosage: 75 MG, QD
     Route: 065
  4. PREDNISOLONE [Suspect]
     Active Substance: PREDNISOLONE
     Indication: Vasculitis
     Dosage: 60 MG, QD (IN THE MORNING, WITH PLANNED WEANING REGIMEN)
     Route: 065
  5. PREDNISOLONE [Suspect]
     Active Substance: PREDNISOLONE
     Dosage: 60 MG, QD (IN THE MORNING, WITH PLANNED WEANING REGIME)
     Route: 065
  6. ELIQUIS [Suspect]
     Active Substance: APIXABAN
     Indication: Pulmonary embolism
     Dosage: 10 MG, QD
     Route: 065
  7. DARBEPOETIN ALFA [Concomitant]
     Active Substance: DARBEPOETIN ALFA
     Indication: Product used for unknown indication
     Dosage: 30 UG, QW (ON TUESDAYS, ONCE A DAY)
     Route: 058
  8. BISOPROLOL [Concomitant]
     Active Substance: BISOPROLOL
     Indication: Transient ischaemic attack
     Dosage: 3.75 MG, QD
     Route: 065
  9. BISOPROLOL [Concomitant]
     Active Substance: BISOPROLOL
     Indication: Transient ischaemic attack
     Dosage: 3.75 MG, QD (IN THE MORNING)
     Route: 065
  10. CYCLOPHOSPHAMIDE [Concomitant]
     Active Substance: CYCLOPHOSPHAMIDE
     Indication: Product used for unknown indication
     Dosage: 100 MG, QD (ONCE IN THE MORNING FOR A FURTHER DAY THEN STOP)
     Route: 065
  11. CYCLOPHOSPHAMIDE [Concomitant]
     Active Substance: CYCLOPHOSPHAMIDE
     Dosage: 100 MG, QD (ONCE IN THE MORNING FOR A FURTHER DAY THEN STOP)
     Route: 065
  12. ACYCLOVIR [Concomitant]
     Active Substance: ACYCLOVIR
     Indication: Product used for unknown indication
     Dosage: 400 MG, QD (IN THE MORNING)
     Route: 065
  13. ACYCLOVIR [Concomitant]
     Active Substance: ACYCLOVIR
     Dosage: 400 MG, QD (IN THE MORNING)
     Route: 065
  14. CALCIUM CARBONATE\CHOLECALCIFEROL [Concomitant]
     Active Substance: CALCIUM CARBONATE\CHOLECALCIFEROL
     Dosage: 2 DF, QD
     Route: 065
  15. CALCIUM CARBONATE\CHOLECALCIFEROL [Concomitant]
     Active Substance: CALCIUM CARBONATE\CHOLECALCIFEROL
     Dosage: 2 DF, QD
     Route: 065
  16. COTRIMOXAZOLE [Concomitant]
     Active Substance: SULFAMETHOXAZOLE\TRIMETHOPRIM
     Indication: Product used for unknown indication
     Dosage: 480 MG, QOD (80MG/400MG, ON MONDAY, WEDNESDAY AND FRIDAY)
     Route: 048
  17. COTRIMOXAZOLE [Concomitant]
     Active Substance: SULFAMETHOXAZOLE\TRIMETHOPRIM
     Dosage: 80MG/400MG, ON MONDAY, WEDNESDAY AND FRIDAY
     Route: 048
  18. COTRIMOXAZOLE [Concomitant]
     Active Substance: SULFAMETHOXAZOLE\TRIMETHOPRIM
     Dosage: 480 MG, QOD (80MG/400MG, ON MONDAY, WEDNESDAY AND FRIDAY)
     Route: 048
  19. COTRIMOXAZOLE [Concomitant]
     Active Substance: SULFAMETHOXAZOLE\TRIMETHOPRIM
     Dosage: 480 MG, QOD (80MG/400MG, ON MONDAY, WEDNESDAY AND FRIDAY)
     Route: 048
  20. COTRIMOXAZOLE [Concomitant]
     Active Substance: SULFAMETHOXAZOLE\TRIMETHOPRIM
     Dosage: 80MG/400MG BID, ON MONDAY, WEDNESDAY AND FRIDAY
     Route: 048
  21. LANSOPRAZOLE [Concomitant]
     Active Substance: LANSOPRAZOLE
     Indication: Product used for unknown indication
     Dosage: 30 MG, QD (IN THE MORNING)
     Route: 065
  22. LANSOPRAZOLE [Concomitant]
     Active Substance: LANSOPRAZOLE
     Dosage: 30 MG, QD (IN THE MORNING)
     Route: 065
  23. INSULIN ASPART [Concomitant]
     Active Substance: INSULIN ASPART
     Indication: Product used for unknown indication
     Dosage: 60 IU, QD (32 UNITS IN THE MORNING AND 28 UNITS AT TEATIME)
     Route: 065
  24. INSULIN ASPART [Concomitant]
     Active Substance: INSULIN ASPART
     Dosage: 60 IU, QD (32 UNITS IN THE MORNING AND 28 UNITS AT TEATIME)
     Route: 065
  25. FLUCONAZOLE [Concomitant]
     Active Substance: FLUCONAZOLE
     Indication: Product used for unknown indication
     Dosage: 50 MG, QD (IN THE MORNING)
     Route: 065
  26. FLUCONAZOLE [Concomitant]
     Active Substance: FLUCONAZOLE
     Dosage: 50 MG, QD (IN THE MORNING)
     Route: 065
  27. FLUCONAZOLE [Concomitant]
     Active Substance: FLUCONAZOLE
     Dosage: 50 MG, QD (IN THE MORNING)
     Route: 065
  28. CLOBETASONE [Concomitant]
     Active Substance: CLOBETASONE
     Indication: Product used for unknown indication
     Dosage: 2 DF, QD
     Route: 065
  29. CLOBETASONE [Concomitant]
     Active Substance: CLOBETASONE
     Dosage: 2 DF, QD
     Route: 065
  30. INSULIN ASPART [Concomitant]
     Active Substance: INSULIN ASPART
     Dosage: 28 IU
     Route: 065
  31. INSULIN ASPART [Concomitant]
     Active Substance: INSULIN ASPART
     Dosage: 60 IU, QD
     Route: 065

REACTIONS (8)
  - Amaurosis fugax [Unknown]
  - Circulatory collapse [Unknown]
  - Pulmonary embolism [Unknown]
  - Transient ischaemic attack [Unknown]
  - Upper gastrointestinal haemorrhage [Unknown]
  - Duodenal ulcer haemorrhage [Unknown]
  - Melaena [Unknown]
  - Drug ineffective [Unknown]
